FAERS Safety Report 5873133-0 (Version None)
Quarter: 2008Q3

REPORT INFORMATION
  Report Type: 
  Country: None (occurrence: None)
  Receive Date: 20080908
  Receipt Date: 20080827
  Transmission Date: 20090109
  Serious: Yes (Hospitalization)
  Sender: FDA-Public Use
  Company Number: US-JNJFOC-20080900088

PATIENT
  Sex: Male
  Weight: 74.84 kg

DRUGS (6)
  1. LEVAQUIN [Suspect]
     Route: 048
  2. LEVAQUIN [Suspect]
     Indication: URINARY TRACT INFECTION
     Route: 048
  3. LISINOPRIL [Concomitant]
     Indication: BLOOD PRESSURE
     Route: 065
  4. CIPRO [Concomitant]
     Indication: URINARY TRACT INFECTION
     Route: 048
  5. ANCEF [Concomitant]
     Indication: URINARY TRACT INFECTION
     Route: 065
  6. VALTREX [Concomitant]
     Indication: HERPES ZOSTER
     Dosage: STOPPED THE MEDICATION IN AUG-2008
     Route: 065

REACTIONS (5)
  - ABASIA [None]
  - ANAEMIA [None]
  - ARTHRALGIA [None]
  - BLOOD CREATININE INCREASED [None]
  - HAEMATURIA [None]
